FAERS Safety Report 17701648 (Version 4)
Quarter: 2022Q3

REPORT INFORMATION
  Report Type: Spontaneous
  Country: PL (occurrence: PL)
  Receive Date: 20200424
  Receipt Date: 20220808
  Transmission Date: 20221026
  Serious: Yes (Hospitalization, Other)
  Sender: FDA-Public Use
  Company Number: PL-AUROBINDO-AUR-APL-2020-020596

PATIENT
  Age: 30 Year
  Sex: Female

DRUGS (19)
  1. AMOXICILLIN\CLAVULANIC ACID [Suspect]
     Active Substance: AMOXICILLIN\CLAVULANIC ACID
     Indication: Antibiotic therapy
     Dosage: UNK
     Route: 065
  2. AMOXICILLIN\CLAVULANIC ACID [Suspect]
     Active Substance: AMOXICILLIN\CLAVULANIC ACID
     Indication: Tuberculosis gastrointestinal
  3. AMOXICILLIN\CLAVULANIC ACID [Suspect]
     Active Substance: AMOXICILLIN\CLAVULANIC ACID
     Indication: Pulmonary tuberculosis
  4. CEFTRIAXONE [Suspect]
     Active Substance: CEFTRIAXONE
     Indication: Tuberculosis gastrointestinal
     Dosage: UNK
     Route: 065
  5. CEFTRIAXONE [Suspect]
     Active Substance: CEFTRIAXONE
     Indication: Pulmonary tuberculosis
  6. ETHAMBUTOL [Suspect]
     Active Substance: ETHAMBUTOL HYDROCHLORIDE
     Indication: Pulmonary tuberculosis
     Dosage: UNK
     Route: 065
  7. ETHAMBUTOL [Suspect]
     Active Substance: ETHAMBUTOL HYDROCHLORIDE
     Indication: Intestinal tuberculosis
  8. GENTAMICIN [Suspect]
     Active Substance: GENTAMICIN
     Indication: Pulmonary tuberculosis
     Dosage: UNK
     Route: 065
  9. GENTAMICIN [Suspect]
     Active Substance: GENTAMICIN
     Indication: Tuberculosis gastrointestinal
  10. ISONIAZID [Suspect]
     Active Substance: ISONIAZID
     Indication: Pulmonary tuberculosis
     Dosage: UNK
     Route: 048
  11. ISONIAZID [Suspect]
     Active Substance: ISONIAZID
     Indication: Intestinal tuberculosis
  12. METRONIDAZOLE [Suspect]
     Active Substance: METRONIDAZOLE
     Indication: Antibiotic therapy
     Dosage: UNK
     Route: 065
  13. METRONIDAZOLE [Suspect]
     Active Substance: METRONIDAZOLE
     Indication: Pulmonary tuberculosis
  14. METRONIDAZOLE [Suspect]
     Active Substance: METRONIDAZOLE
     Indication: Tuberculosis gastrointestinal
  15. PYRAZINAMIDE [Suspect]
     Active Substance: PYRAZINAMIDE
     Indication: Intestinal tuberculosis
     Dosage: UNK
     Route: 065
  16. PYRAZINAMIDE [Suspect]
     Active Substance: PYRAZINAMIDE
     Indication: Pulmonary tuberculosis
  17. RIFAMPIN [Suspect]
     Active Substance: RIFAMPIN
     Indication: Intestinal tuberculosis
     Dosage: UNK
     Route: 065
  18. RIFAMPIN [Suspect]
     Active Substance: RIFAMPIN
     Indication: Pulmonary tuberculosis
  19. OFLOXACIN [Concomitant]
     Active Substance: OFLOXACIN
     Indication: Pulmonary tuberculosis
     Dosage: UNK
     Route: 065

REACTIONS (6)
  - Liver injury [Recovering/Resolving]
  - Drug ineffective [Recovering/Resolving]
  - Arthralgia [Unknown]
  - Alopecia [Unknown]
  - Visual acuity reduced [Unknown]
  - Optic neuritis [Unknown]
